FAERS Safety Report 7338077-6 (Version None)
Quarter: 2011Q1

REPORT INFORMATION
  Report Type: 
  Country: None (occurrence: None)
  Receive Date: 20110308
  Receipt Date: 20110224
  Transmission Date: 20110831
  Serious: Yes (Hospitalization, Other)
  Sender: FDA-Public Use
  Company Number: PHHY2011DK15794

PATIENT
  Sex: Female

DRUGS (5)
  1. RITALIN [Suspect]
     Indication: ATTENTION DEFICIT/HYPERACTIVITY DISORDER
     Dosage: 10 MG, QID
     Route: 048
     Dates: start: 20101130, end: 20110223
  2. KEPPRA [Concomitant]
  3. ZELDOX [Concomitant]
  4. CYMBALTA [Concomitant]
  5. UNIKALK BASIC [Concomitant]

REACTIONS (4)
  - AFFECT LABILITY [None]
  - SUICIDAL IDEATION [None]
  - DEPRESSIVE SYMPTOM [None]
  - EATING DISORDER [None]
